FAERS Safety Report 5669029-X (Version None)
Quarter: 2008Q1

REPORT INFORMATION
  Report Type: 
  Country: None (occurrence: None)
  Receive Date: 20080313
  Receipt Date: 20080313
  Transmission Date: 20080703
  Serious: Yes (Life-Threatening, Hospitalization)
  Sender: FDA-Public Use
  Company Number: None

PATIENT
  Age: 67 Year
  Sex: Female
  Weight: 73.9363 kg

DRUGS (2)
  1. CARBOPLATIN [Suspect]
     Indication: SMALL CELL LUNG CANCER EXTENSIVE STAGE
     Dosage: AUC 5 DAY 1 Q 21 DAYS IV DRIP
     Route: 041
     Dates: start: 20080109, end: 20080227
  2. CPT-11 [Suspect]
     Dosage: 50 MG/M2 DAY 1 + 8 Q 21 DAY IV DRIP
     Route: 041
     Dates: start: 20080109, end: 20080305

REACTIONS (6)
  - CEREBRAL INFARCTION [None]
  - FALL [None]
  - IIIRD NERVE DISORDER [None]
  - NAUSEA [None]
  - UNRESPONSIVE TO STIMULI [None]
  - VOMITING [None]
